FAERS Safety Report 21896576 (Version 23)
Quarter: 2024Q3

REPORT INFORMATION
  Report Type: Report from Study
  Country: MX (occurrence: MX)
  Receive Date: 20230123
  Receipt Date: 20240716
  Transmission Date: 20241017
  Serious: Yes (Hospitalization)
  Sender: TAKEDA
  Company Number: MX-TAKEDA-2023TUS005959

PATIENT
  Age: 3 Year
  Sex: Male
  Weight: 17 kg

DRUGS (3)
  1. IDURSULFASE [Suspect]
     Active Substance: IDURSULFASE
     Indication: Mucopolysaccharidosis II
     Dosage: 2 DOSAGE FORM, 1/WEEK
     Route: 042
     Dates: start: 20221212
  2. IDURSULFASE [Suspect]
     Active Substance: IDURSULFASE
     Dosage: 2 DOSAGE FORM, 1/WEEK
     Route: 042
  3. IDURSULFASE [Suspect]
     Active Substance: IDURSULFASE
     Dosage: UNK UNK, 1/WEEK
     Route: 042

REACTIONS (17)
  - Dermatitis allergic [Recovering/Resolving]
  - Nasopharyngitis [Recovering/Resolving]
  - Seasonal allergy [Not Recovered/Not Resolved]
  - Oxygen saturation decreased [Recovering/Resolving]
  - Lymph node rupture [Unknown]
  - Cyanosis [Recovering/Resolving]
  - Influenza [Not Recovered/Not Resolved]
  - Influenza like illness [Recovering/Resolving]
  - Rhinorrhoea [Recovered/Resolved]
  - Bronchitis [Not Recovered/Not Resolved]
  - Conjunctivitis [Recovering/Resolving]
  - Pharyngitis [Not Recovered/Not Resolved]
  - Viral pharyngitis [Not Recovered/Not Resolved]
  - Gastric infection [Not Recovered/Not Resolved]
  - Product dose omission issue [Recovering/Resolving]
  - Ear infection [Recovering/Resolving]
  - Cough [Recovered/Resolved]

NARRATIVE: CASE EVENT DATE: 20230109
